FAERS Safety Report 6129018-8 (Version None)
Quarter: 2009Q1

REPORT INFORMATION
  Report Type: 
  Country: None (occurrence: None)
  Receive Date: 20090324
  Receipt Date: 20090319
  Transmission Date: 20090719
  Serious: Yes (Life-Threatening, Hospitalization, Other)
  Sender: FDA-Public Use
  Company Number: PHHY2008DE32636

PATIENT
  Age: 72 Year
  Sex: Male
  Weight: 86 kg

DRUGS (7)
  1. RASILEZ [Suspect]
     Indication: HYPERTENSION
     Dosage: 300 MG, QD
     Route: 048
     Dates: start: 20080101, end: 20081201
  2. MARCUMAR [Suspect]
     Dosage: UNK
     Dates: start: 20010101, end: 20081102
  3. ALLOPURINOL [Concomitant]
     Dosage: 1 DF, QD
  4. KALINOR RETARD [Concomitant]
     Dosage: 1 DF, QD
  5. APROVEL [Concomitant]
     Dosage: 1 DF, QD
  6. METOPROLOL TARTRATE [Concomitant]
     Dosage: 1 DF, QD
  7. INSPRA [Concomitant]

REACTIONS (24)
  - ATRIAL FIBRILLATION [None]
  - BLOOD PRESSURE INCREASED [None]
  - BRAIN MASS [None]
  - BRAIN OEDEMA [None]
  - CEREBELLAR HAEMORRHAGE [None]
  - CEREBRAL ATROPHY [None]
  - CEREBRAL ISCHAEMIA [None]
  - CEREBRAL MICROANGIOPATHY [None]
  - COORDINATION ABNORMAL [None]
  - DIZZINESS [None]
  - DYSARTHRIA [None]
  - ELECTROCARDIOGRAM ST SEGMENT DEPRESSION [None]
  - EXTRASYSTOLES [None]
  - FALL [None]
  - HEART RATE ABNORMAL [None]
  - HYPERTENSIVE CRISIS [None]
  - NAUSEA [None]
  - NYSTAGMUS [None]
  - PROTHROMBIN TIME PROLONGED [None]
  - REFLEXES ABNORMAL [None]
  - SYNCOPE [None]
  - TACHYCARDIA [None]
  - VENTRICULAR EXTRASYSTOLES [None]
  - VOMITING [None]
